FAERS Safety Report 11082146 (Version 1)
Quarter: 2015Q2

REPORT INFORMATION
  Report Type: Spontaneous
  Country: AU (occurrence: AU)
  Receive Date: 20150501
  Receipt Date: 20150501
  Transmission Date: 20150821
  Serious: Yes (Hospitalization, Other)
  Sender: FDA-Public Use
  Company Number: PHHY2015AU048799

PATIENT
  Age: 54 Year
  Sex: Female

DRUGS (10)
  1. OXAZEPAM. [Concomitant]
     Active Substance: OXAZEPAM
     Indication: PRODUCT USED FOR UNKNOWN INDICATION
     Dosage: 600 MG,
     Route: 065
  2. ACE//PARACETAMOL [Concomitant]
     Active Substance: ACETAMINOPHEN
     Indication: PRODUCT USED FOR UNKNOWN INDICATION
     Dosage: 10000 MG
     Route: 065
  3. DOTHIEPIN [Concomitant]
     Active Substance: DOTHIEPIN\DOTHIEPIN HYDROCHLORIDE
     Indication: PRODUCT USED FOR UNKNOWN INDICATION
     Dosage: 2250 MG,
     Route: 065
  4. METFORMIN HYDROCHLORIDE SANDOZ [Suspect]
     Active Substance: METFORMIN HYDROCHLORIDE
     Indication: DIABETES MELLITUS
     Dosage: 35 G,
     Route: 065
  5. THIORIDAZINE [Concomitant]
     Active Substance: THIORIDAZINE
     Indication: PRODUCT USED FOR UNKNOWN INDICATION
     Dosage: 5000 MG
     Route: 065
  6. ENALAPRIL [Concomitant]
     Active Substance: ENALAPRIL
     Indication: PRODUCT USED FOR UNKNOWN INDICATION
     Dosage: 300 MG
     Route: 065
  7. RANITIDINE [Concomitant]
     Active Substance: RANITIDINE\RANITIDINE HYDROCHLORIDE
     Indication: PRODUCT USED FOR UNKNOWN INDICATION
     Dosage: 750 MG,
     Route: 065
  8. CODEINE [Concomitant]
     Active Substance: CODEINE
     Indication: PRODUCT USED FOR UNKNOWN INDICATION
     Dosage: 600 MG,
     Route: 065
  9. SIMVASTATIN. [Concomitant]
     Active Substance: SIMVASTATIN
     Indication: PRODUCT USED FOR UNKNOWN INDICATION
     Dosage: 300 MG,
     Route: 065
  10. QUININE [Concomitant]
     Active Substance: QUININE
     Indication: PRODUCT USED FOR UNKNOWN INDICATION
     Dosage: 6000 MG
     Route: 065

REACTIONS (4)
  - Hypotension [Unknown]
  - Overdose [Unknown]
  - Coma [Unknown]
  - Tachycardia [Unknown]
